FAERS Safety Report 9388998 (Version 1)
Quarter: 2013Q3

REPORT INFORMATION
  Report Type: Spontaneous
  Country: PL (occurrence: PL)
  Receive Date: 20130708
  Receipt Date: 20130708
  Transmission Date: 20140515
  Serious: Yes (Other)
  Sender: FDA-Public Use
  Company Number: PL-BAXTER-2013BAX024992

PATIENT
  Age: 53 Year
  Sex: Female

DRUGS (5)
  1. FLUCONAZOLE REDIBAG 2 MG/ML SOLUTION FOR INFUSION [Suspect]
     Indication: EVIDENCE BASED TREATMENT
     Dates: start: 201103
  2. CIPROFLOXACIN REDIBAG 2 MG/ML INFUSIONSL?SUNG [Suspect]
     Indication: EVIDENCE BASED TREATMENT
     Dates: start: 201103
  3. VANCOMYCIN [Suspect]
     Indication: EVIDENCE BASED TREATMENT
     Dates: start: 201103
  4. HUMIRA [Concomitant]
     Indication: PSORIATIC ARTHROPATHY
  5. ISONIAZID [Concomitant]
     Indication: ANTIBIOTIC PROPHYLAXIS

REACTIONS (5)
  - No therapeutic response [Not Recovered/Not Resolved]
  - Condition aggravated [Not Recovered/Not Resolved]
  - Pyrexia [None]
  - Skin exfoliation [None]
  - Rash pustular [None]
